FAERS Safety Report 6155787-7 (Version None)
Quarter: 2009Q2

REPORT INFORMATION
  Report Type: 
  Country: None (occurrence: None)
  Receive Date: 20090415
  Receipt Date: 20090413
  Transmission Date: 20091009
  Serious: Yes (Death, Other)
  Sender: FDA-Public Use
  Company Number: PHHY2009KR13837

PATIENT
  Age: 49 Year
  Sex: Female

DRUGS (3)
  1. IMATINIB MESYLATE [Suspect]
  2. HYDROXYUREA [Concomitant]
  3. NILOTINIB [Concomitant]

REACTIONS (7)
  - CHROMOSOME ANALYSIS ABNORMAL [None]
  - CHRONIC MYELOID LEUKAEMIA [None]
  - DRUG RESISTANCE [None]
  - GENE MUTATION IDENTIFICATION TEST POSITIVE [None]
  - HAEMORRHAGE INTRACRANIAL [None]
  - LABORATORY TEST ABNORMAL [None]
  - LEUKOCYTOSIS [None]
